FAERS Safety Report 4411624-X (Version None)
Quarter: 2004Q3

REPORT INFORMATION
  Report Type: 
  Country: None (occurrence: None)
  Receive Date: 20040728
  Receipt Date: 20040728
  Transmission Date: 20050211
  Serious: Yes (Hospitalization)
  Sender: FDA-Public Use
  Company Number: None

PATIENT
  Age: 69 Year
  Sex: Male
  Weight: 61.2 kg

DRUGS (13)
  1. ETODOLAC [Suspect]
     Indication: BACK PAIN
     Dosage: 400 MG 400 MG BI ORAL
     Route: 048
     Dates: end: 20040322
  2. FOLIC ACID [Concomitant]
  3. ACETAMINOPHEN [Concomitant]
  4. ASPIRIN [Concomitant]
  5. ATENOLOL [Concomitant]
  6. FLUOXETINE HCL [Concomitant]
  7. LISINOPRIL [Concomitant]
  8. LOVASTATIN [Concomitant]
  9. ALPRAZOLAM [Concomitant]
  10. DIVALPROEX SODIUM [Concomitant]
  11. OXYCODONE HCL [Concomitant]
  12. FENTANYL [Concomitant]
  13. ETODOLAC [Concomitant]

REACTIONS (1)
  - GASTROINTESTINAL HAEMORRHAGE [None]
